FAERS Safety Report 6772616-9 (Version None)
Quarter: 2010Q2

REPORT INFORMATION
  Report Type: 
  Country: None (occurrence: None)
  Receive Date: 20100616
  Receipt Date: 20091021
  Transmission Date: 20101027
  Serious: No
  Sender: FDA-Public Use
  Company Number: US-ASTRAZENECA-2009UW08967

PATIENT
  Age: 58 Year
  Sex: Female
  Weight: 57.6 kg

DRUGS (2)
  1. PULMICORT FLEXHALER [Suspect]
     Indication: ASTHMA
     Route: 055
  2. ARIMIDEX [Concomitant]
     Indication: BREAST CANCER

REACTIONS (2)
  - DRUG INEFFECTIVE [None]
  - DYSPNOEA [None]
